FAERS Safety Report 20757843 (Version 1)
Quarter: 2022Q2

REPORT INFORMATION
  Report Type: Report from Study
  Country: US (occurrence: US)
  Receive Date: 20220427
  Receipt Date: 20220427
  Transmission Date: 20220721
  Serious: Yes (Other)
  Sender: FDA-Public Use
  Company Number: US-BAYER-2022A060378

PATIENT

DRUGS (1)
  1. BAYER BACK AND BODY EXTRA STRENGTH [Suspect]
     Active Substance: ASPIRIN\CAFFEINE
     Indication: Pain
     Dosage: UNK
     Route: 065

REACTIONS (2)
  - Drug hypersensitivity [Unknown]
  - Respiratory tract oedema [Unknown]
